FAERS Safety Report 8162292-5 (Version None)
Quarter: 2012Q1

REPORT INFORMATION
  Report Type: 
  Country: None (occurrence: None)
  Receive Date: 20120224
  Receipt Date: 20120221
  Transmission Date: 20120608
  Serious: Yes (Life-Threatening)
  Sender: FDA-Public Use
  Company Number: JP-SANOFI-AVENTIS-2012SA006680

PATIENT
  Age: 72 Year
  Sex: Female
  Weight: 73.8 kg

DRUGS (14)
  1. ENOXAPARIN SODIUM [Suspect]
     Indication: ATRIAL FIBRILLATION
     Route: 058
     Dates: start: 20120127, end: 20120127
  2. XYLITOL AND GLUCOSE AND ELECTROLYTES NOS AND N-ACETYLTYROSIN AND AMINO [Concomitant]
     Route: 042
     Dates: start: 20120126
  3. SIGMART [Concomitant]
     Indication: PROPHYLAXIS
     Route: 042
     Dates: start: 20120126
  4. ENOXAPARIN SODIUM [Suspect]
     Indication: SURGERY
     Route: 058
     Dates: start: 20120127, end: 20120127
  5. ENOXAPARIN SODIUM [Suspect]
     Indication: CEREBRAL INFARCTION
     Route: 058
     Dates: start: 20120127, end: 20120127
  6. ALL OTHER THERAPEUTIC PRODUCTS [Concomitant]
     Route: 042
     Dates: start: 20120126
  7. CEFAZOLIN SODIUM [Concomitant]
     Indication: INFECTION PROPHYLAXIS
     Route: 042
     Dates: start: 20120126
  8. ENOXAPARIN SODIUM [Suspect]
     Route: 058
     Dates: start: 20120128, end: 20120129
  9. ENOXAPARIN SODIUM [Suspect]
     Route: 058
     Dates: start: 20120128, end: 20120129
  10. CYANOCOBALAMIN/PYRIDOXINE HYDROCHLORIDE/THIAMINE DISULFIDE [Concomitant]
     Indication: VITAMIN SUPPLEMENTATION
     Route: 042
     Dates: start: 20120126
  11. CEFAZOLIN [Concomitant]
     Route: 042
     Dates: start: 20120126
  12. BISOLVON [Concomitant]
     Dosage: DOSE: 1 AX2
     Route: 042
     Dates: start: 20120126
  13. RINGERS SOLUTION [Concomitant]
     Route: 042
     Dates: start: 20120126
  14. ENOXAPARIN SODIUM [Suspect]
     Route: 058
     Dates: start: 20120128, end: 20120129

REACTIONS (3)
  - POST PROCEDURAL HAEMORRHAGE [None]
  - ALTERED STATE OF CONSCIOUSNESS [None]
  - HAEMOGLOBIN DECREASED [None]
